FAERS Safety Report 22608974 (Version 1)
Quarter: 2023Q2

REPORT INFORMATION
  Report Type: Report from Study
  Country: US (occurrence: None)
  Receive Date: 20230616
  Receipt Date: 20230616
  Transmission Date: 20230721
  Serious: Yes (Hospitalization)
  Sender: FDA-Public Use
  Company Number: US-ROCHE-2555068

PATIENT
  Age: 68 Year
  Sex: Male
  Weight: 51.2 kg

DRUGS (42)
  1. MOSUNETUZUMAB [Suspect]
     Active Substance: MOSUNETUZUMAB
     Indication: B-cell lymphoma
     Dosage: DATE OF MOST RECENT DOSE OF MOSUNETUZUMAB (60 MG) PRIOR TO EVENT ONSET: 17/FEB/2020 AT 14:00
     Route: 042
     Dates: start: 20180109
  2. DOCUSATE SODIUM [Concomitant]
     Active Substance: DOCUSATE SODIUM
     Indication: Constipation
     Route: 048
     Dates: start: 20200208
  3. ALLOPURINOL [Concomitant]
     Active Substance: ALLOPURINOL
     Indication: Prophylaxis
     Route: 048
     Dates: start: 20180103, end: 20200413
  4. ALLOPURINOL [Concomitant]
     Active Substance: ALLOPURINOL
     Route: 048
     Dates: start: 20200203
  5. OXYCODONE [Concomitant]
     Active Substance: OXYCODONE
     Indication: Flank pain
     Route: 048
     Dates: start: 20200116, end: 20200302
  6. ACETAMINOPHEN\HYDROCODONE [Concomitant]
     Active Substance: ACETAMINOPHEN\HYDROCODONE
     Indication: Flank pain
     Route: 048
  7. SIMETHICONE (DIMETHICONE) [Concomitant]
     Active Substance: DIMETHICONE
     Indication: Abdominal distension
     Route: 048
     Dates: start: 20200130
  8. SIMETHICONE (DIMETHICONE) [Concomitant]
     Active Substance: DIMETHICONE
     Indication: Flatulence
  9. DICYCLOMINE [Concomitant]
     Active Substance: DICYCLOMINE HYDROCHLORIDE
     Indication: Abdominal pain
     Route: 048
     Dates: start: 20200130, end: 20200130
  10. FENTANYL [Concomitant]
     Active Substance: FENTANYL
     Indication: Flank pain
     Dosage: 12 OTHER
     Route: 061
     Dates: start: 20200203, end: 20200211
  11. FENTANYL [Concomitant]
     Active Substance: FENTANYL
     Route: 061
     Dates: start: 20200203, end: 20200203
  12. FENTANYL [Concomitant]
     Active Substance: FENTANYL
     Dosage: 25 OTHER
     Route: 061
     Dates: start: 20200209, end: 20200209
  13. FENTANYL [Concomitant]
     Active Substance: FENTANYL
     Dosage: 12 OTHER
     Route: 061
     Dates: start: 20200207, end: 20200207
  14. FENTANYL [Concomitant]
     Active Substance: FENTANYL
     Dosage: 25 OTHER
     Route: 061
     Dates: start: 20200211, end: 20200211
  15. FENTANYL [Concomitant]
     Active Substance: FENTANYL
     Dosage: 25 OTHER
     Route: 061
     Dates: start: 20200212, end: 20200224
  16. DIPHENHYDRAMINE [Concomitant]
     Active Substance: DIPHENHYDRAMINE
     Indication: Prophylaxis
     Route: 048
     Dates: start: 20200203, end: 20200203
  17. DIPHENHYDRAMINE [Concomitant]
     Active Substance: DIPHENHYDRAMINE
     Route: 048
     Dates: start: 20200210, end: 20200210
  18. DIPHENHYDRAMINE [Concomitant]
     Active Substance: DIPHENHYDRAMINE
     Route: 048
     Dates: start: 20200217, end: 20200217
  19. DEXAMETHASONE [Concomitant]
     Active Substance: DEXAMETHASONE
     Indication: Prophylaxis
     Route: 042
     Dates: start: 20200203, end: 20200203
  20. DEXAMETHASONE [Concomitant]
     Active Substance: DEXAMETHASONE
     Route: 042
     Dates: start: 20200210, end: 20200210
  21. DEXAMETHASONE [Concomitant]
     Active Substance: DEXAMETHASONE
     Route: 042
     Dates: start: 20200217, end: 20200217
  22. ACETAMINOPHEN [Concomitant]
     Active Substance: ACETAMINOPHEN
     Indication: Prophylaxis
     Route: 048
     Dates: start: 20200203, end: 20200203
  23. ACETAMINOPHEN [Concomitant]
     Active Substance: ACETAMINOPHEN
     Indication: Pain
     Route: 048
     Dates: start: 20200210, end: 20200210
  24. ACETAMINOPHEN [Concomitant]
     Active Substance: ACETAMINOPHEN
     Route: 048
     Dates: start: 20200217, end: 20200217
  25. ACETAMINOPHEN [Concomitant]
     Active Substance: ACETAMINOPHEN
     Route: 048
  26. TAMSULOSIN [Concomitant]
     Active Substance: TAMSULOSIN
     Indication: Benign prostatic hyperplasia
     Route: 048
  27. POLYETHYLENE GLYCOL [Concomitant]
     Active Substance: POLYETHYLENE GLYCOL
     Indication: Constipation
     Route: 048
     Dates: start: 20200208
  28. HYDROMORPHONE [Concomitant]
     Active Substance: HYDROMORPHONE
     Indication: Abdominal pain
     Route: 048
     Dates: start: 20200207, end: 20200208
  29. HYDROMORPHONE [Concomitant]
     Active Substance: HYDROMORPHONE
     Route: 048
     Dates: start: 20200208, end: 20200210
  30. BISACODYL [Concomitant]
     Active Substance: BISACODYL
     Indication: Constipation
     Route: 048
     Dates: start: 20200208, end: 20200209
  31. LACTULOSE [Concomitant]
     Active Substance: LACTULOSE
     Indication: Constipation
     Route: 048
     Dates: start: 20200209, end: 20200209
  32. SENNA [Concomitant]
     Active Substance: SENNA LEAF\SENNOSIDES\SENNOSIDES A AND B
     Indication: Constipation
     Route: 048
     Dates: start: 20200210, end: 20200323
  33. SODIUM PHOSPHATE [Concomitant]
     Active Substance: SODIUM PHOSPHATE
     Indication: Hypophosphataemia
     Dosage: 30 OTHER
     Route: 042
     Dates: start: 20200218, end: 20200218
  34. SODIUM PHOSPHATE [Concomitant]
     Active Substance: SODIUM PHOSPHATE
     Dosage: 15 OTHER
     Route: 042
     Dates: start: 20200217, end: 20200218
  35. PANTOPRAZOLE [Concomitant]
     Active Substance: PANTOPRAZOLE
     Indication: Prophylaxis
     Route: 048
     Dates: start: 20200217, end: 20200218
  36. POTASSIUM CHLORIDE [Concomitant]
     Active Substance: POTASSIUM CHLORIDE
     Indication: Hypokalaemia
     Dosage: 40 OTHER
     Route: 048
     Dates: start: 20200217, end: 20200217
  37. MAGNESIUM [Concomitant]
     Active Substance: MAGNESIUM
     Indication: Hypomagnesaemia
     Dosage: 2 TABLET
     Route: 048
     Dates: start: 20200218, end: 20200218
  38. AZTREONAM [Concomitant]
     Active Substance: AZTREONAM
     Indication: Prophylaxis
     Route: 042
     Dates: start: 20200219, end: 20200219
  39. CALCIUM GLUCONATE [Concomitant]
     Active Substance: CALCIUM GLUCONATE
     Indication: Hypocalcaemia
     Route: 042
     Dates: start: 20200218, end: 20200218
  40. TRAMADOL [Concomitant]
     Active Substance: TRAMADOL
     Indication: Pain
     Route: 048
     Dates: start: 20160803
  41. ONDANSETRON [Concomitant]
     Active Substance: ONDANSETRON
     Indication: Nausea
     Route: 048
     Dates: start: 20171213, end: 20211119
  42. ONDANSETRON [Concomitant]
     Active Substance: ONDANSETRON
     Indication: Vomiting

REACTIONS (2)
  - Hypotension [Recovered/Resolved]
  - Bradycardia [Recovered/Resolved]

NARRATIVE: CASE EVENT DATE: 20200218
